FAERS Safety Report 7716237-X (Version None)
Quarter: 2011Q3

REPORT INFORMATION
  Report Type: 
  Country: None (occurrence: None)
  Receive Date: 20110812
  Receipt Date: 20110513
  Transmission Date: 20111222
  Serious: Yes (Other)
  Sender: FDA-Public Use
  Company Number: 2011SP022134

PATIENT
  Age: 68 Year
  Sex: Female

DRUGS (4)
  1. ATIVAN [Concomitant]
  2. REMERON [Suspect]
     Indication: ANXIETY
     Dosage: 30 MG;QAM;PO
     Route: 048
     Dates: start: 20110201
  3. REMERON [Suspect]
     Indication: DEPRESSION
     Dosage: 30 MG;QAM;PO
     Route: 048
     Dates: start: 20110201
  4. REMERON [Suspect]
     Indication: STRESS
     Dosage: 30 MG;QAM;PO
     Route: 048
     Dates: start: 20110201

REACTIONS (3)
  - AMNESIA [None]
  - DEPRESSED MOOD [None]
  - FOOD CRAVING [None]
